FAERS Safety Report 5805425-5 (Version None)
Quarter: 2008Q3

REPORT INFORMATION
  Report Type: 
  Country: None (occurrence: None)
  Receive Date: 20080710
  Receipt Date: 20080701
  Transmission Date: 20090109
  Serious: Yes (Death)
  Sender: FDA-Public Use
  Company Number: US-JNJFOC-20061101755

PATIENT
  Sex: Female
  Weight: 90.72 kg

DRUGS (4)
  1. ORTHO EVRA [Suspect]
     Indication: POLYCYSTIC OVARIES
     Route: 062
  2. ORTHO EVRA [Suspect]
     Indication: AMENORRHOEA
     Route: 062
  3. ORTHO EVRA [Suspect]
     Indication: CONTRACEPTION
     Route: 062
  4. GLUCOPHAGE [Concomitant]

REACTIONS (2)
  - PULMONARY EMBOLISM [None]
  - THROMBOSIS [None]
